FAERS Safety Report 5644666-7 (Version None)
Quarter: 2008Q1

REPORT INFORMATION
  Report Type: 
  Country: None (occurrence: None)
  Receive Date: 20080229
  Receipt Date: 20070514
  Transmission Date: 20080703
  Serious: No
  Sender: FDA-Public Use
  Company Number: A0651248A

PATIENT
  Age: 30 Year
  Sex: Female

DRUGS (2)
  1. VALTREX [Suspect]
     Indication: GENITAL HERPES
     Dosage: 500MG PER DAY
     Route: 048
  2. TRIPHASIL-28 [Concomitant]

REACTIONS (1)
  - GENITAL HERPES [None]
